FAERS Safety Report 5229816-9 (Version None)
Quarter: 2007Q1

REPORT INFORMATION
  Report Type: 
  Country: None (occurrence: None)
  Receive Date: 20070206
  Receipt Date: 20061103
  Transmission Date: 20070707
  Serious: No
  Sender: FDA-Public Use
  Company Number: US-GLAXOSMITHKLINE-A0626164A

PATIENT
  Age: 64 Year
  Sex: Male

DRUGS (3)
  1. PAXIL [Suspect]
     Indication: DEPRESSION
     Dosage: 20MG PER DAY
     Route: 048
  2. ACIPHEX [Concomitant]
  3. SKELAXIN [Concomitant]

REACTIONS (2)
  - CHROMATURIA [None]
  - SOMNOLENCE [None]
